FAERS Safety Report 8945750 (Version 2)
Quarter: 2012Q4

REPORT INFORMATION
  Report Type: Report from Study
  Country: GB (occurrence: GB)
  Receive Date: 20121205
  Receipt Date: 20121221
  Transmission Date: 20130627
  Serious: Yes (Hospitalization)
  Sender: FDA-Public Use
  Company Number: GB-SANOFI-AVENTIS-2012SA088723

PATIENT
  Age: 59 Year
  Sex: Male
  Weight: 89.1 kg

DRUGS (11)
  1. TAXOTERE [Suspect]
     Indication: NON-SMALL CELL LUNG CANCER STAGE IV
     Route: 041
     Dates: start: 20120905, end: 20120905
  2. TAXOTERE [Suspect]
     Indication: NON-SMALL CELL LUNG CANCER STAGE IV
     Route: 041
     Dates: start: 20120926, end: 20120926
  3. BLINDED THERAPY [Suspect]
     Indication: NON-SMALL CELL LUNG CANCER STAGE IV
     Route: 041
     Dates: start: 20120905, end: 20120905
  4. BLINDED THERAPY [Suspect]
     Indication: NON-SMALL CELL LUNG CANCER STAGE IV
     Route: 041
     Dates: start: 20120926, end: 20120926
  5. CANDESARTAN [Concomitant]
     Indication: HYPERTENSION
     Dates: start: 201203, end: 20121119
  6. LANSOPRAZOLE [Concomitant]
     Indication: ACID REFLUX (ESOPHAGEAL)
     Dates: start: 20120316, end: 20121119
  7. DEXAMETHASONE [Concomitant]
     Dates: start: 20120823, end: 20121119
  8. FUROSEMIDE [Concomitant]
     Indication: ANKLE EDEMA
     Dates: start: 20120910, end: 20121119
  9. ORAMORPH [Concomitant]
     Indication: PAIN
     Dates: start: 20120312, end: 20121119
  10. MORPHINE SULFATE [Concomitant]
     Indication: PAIN
     Dates: start: 20120903, end: 20121119
  11. MOVICOL [Concomitant]
     Indication: CONSTIPATION
     Dates: start: 20120903, end: 20121119

REACTIONS (3)
  - Empyema [Recovering/Resolving]
  - Malignant ascites [Recovering/Resolving]
  - Pleural effusion [Unknown]
